FAERS Safety Report 21486847 (Version 1)
Quarter: 2022Q4

REPORT INFORMATION
  Report Type: Spontaneous
  Country: CN (occurrence: CN)
  Receive Date: 20221020
  Receipt Date: 20221020
  Transmission Date: 20230112
  Serious: Yes (Other)
  Sender: FDA-Public Use
  Company Number: CN-AMGEN-CHNSP2022177659

PATIENT
  Age: 49 Year
  Sex: Male
  Weight: 65 kg

DRUGS (2)
  1. REPATHA [Suspect]
     Active Substance: EVOLOCUMAB
     Indication: Angina unstable
     Dosage: 140 MILLIGRAM
     Route: 058
     Dates: start: 20221001, end: 20221001
  2. IODIXANOL [Suspect]
     Active Substance: IODIXANOL
     Indication: Device information output issue
     Dosage: 32 GRAM
     Route: 013
     Dates: start: 20221001, end: 20221001

REACTIONS (3)
  - Pruritus [Recovering/Resolving]
  - Rash [Recovering/Resolving]
  - Face oedema [Recovering/Resolving]

NARRATIVE: CASE EVENT DATE: 20221001
